FAERS Safety Report 13197151 (Version 1)
Quarter: 2017Q1

REPORT INFORMATION
  Report Type: Spontaneous
  Country: US (occurrence: US)
  Receive Date: 20170208
  Receipt Date: 20170208
  Transmission Date: 20170428
  Serious: Yes (Other)
  Sender: FDA-Public Use
  Company Number: US-ELI_LILLY_AND_COMPANY-US201608000685

PATIENT

DRUGS (1)
  1. CYMBALTA [Suspect]
     Active Substance: DULOXETINE HYDROCHLORIDE
     Indication: PRODUCT USED FOR UNKNOWN INDICATION
     Dosage: 30 MG, UNKNOWN
     Route: 065
     Dates: start: 20111014

REACTIONS (6)
  - Suicidal ideation [Unknown]
  - Drug withdrawal syndrome [Unknown]
  - Dizziness [Unknown]
  - Insomnia [Unknown]
  - Affect lability [Unknown]
  - Nausea [Unknown]
